FAERS Safety Report 8029739-6 (Version None)
Quarter: 2012Q1

REPORT INFORMATION
  Report Type: 
  Country: None (occurrence: None)
  Receive Date: 20120109
  Receipt Date: 20120106
  Transmission Date: 20120608
  Serious: Yes (Hospitalization)
  Sender: FDA-Public Use
  Company Number: US-BAYER-2012-001793

PATIENT
  Age: 64 Year
  Sex: Female

DRUGS (2)
  1. INTERFERON BETA-1B [Suspect]
     Indication: RELAPSING-REMITTING MULTIPLE SCLEROSIS
     Dosage: UNK
     Route: 058
     Dates: start: 20020725, end: 20021202
  2. INTERFERON BETA-1B [Suspect]
     Dosage: 8 MIU, UNK
     Route: 058
     Dates: start: 20100418

REACTIONS (3)
  - HAEMORRHAGE [None]
  - ANAEMIA [None]
  - CHEST PAIN [None]
